FAERS Safety Report 5782533-9 (Version None)
Quarter: 2008Q2

REPORT INFORMATION
  Report Type: 
  Country: None (occurrence: None)
  Receive Date: 20080623
  Receipt Date: 20080611
  Transmission Date: 20081010
  Serious: Yes (Hospitalization, Other)
  Sender: FDA-Public Use
  Company Number: DE-PFIZER INC-2008044536

PATIENT
  Sex: Male
  Weight: 96 kg

DRUGS (10)
  1. LYRICA [Suspect]
     Indication: NEURALGIA
     Route: 048
  2. VALPROATE SODIUM [Concomitant]
  3. ZOPICLONE [Concomitant]
  4. TRIMIPRAMINE MALEATE [Concomitant]
  5. PALLADON [Concomitant]
  6. AZATHIOPRINE [Concomitant]
  7. CORTISONE [Concomitant]
  8. PROPRANOLOL [Concomitant]
  9. SALOFALK ^MERCK^ [Concomitant]
  10. DECORTIN [Concomitant]

REACTIONS (3)
  - CONFUSIONAL STATE [None]
  - EPILEPSY [None]
  - RESTLESSNESS [None]
